FAERS Safety Report 18401567 (Version 5)
Quarter: 2020Q4

REPORT INFORMATION
  Report Type: Spontaneous
  Country: JP (occurrence: JP)
  Receive Date: 20201020
  Receipt Date: 20201230
  Transmission Date: 20210114
  Serious: Yes (Hospitalization, Other)
  Sender: FDA-Public Use
  Company Number: JP-AMGEN-JPNSP2020169039

PATIENT
  Age: 81 Year
  Sex: Male
  Weight: 69.7 kg

DRUGS (8)
  1. ALFAROL [Concomitant]
     Active Substance: ALFACALCIDOL
     Dosage: 0.25 UG, EVERYDAY STOP DATE:09-AUG-2019
     Route: 048
  2. ALFAROL [Concomitant]
     Active Substance: ALFACALCIDOL
     Dosage: 0.25 UG, EVERYDAY
     Route: 048
     Dates: start: 20201017
  3. PARSABIV [Suspect]
     Active Substance: ETELCALCETIDE HYDROCHLORIDE
     Dosage: 5 MILLIGRAM, 2 TIMES/WK
     Route: 010
     Dates: start: 20191210
  4. EPOETIN ALFA [Concomitant]
     Active Substance: ERYTHROPOIETIN
     Dosage: 3000 IU, QW
     Route: 065
  5. ALFAROL [Concomitant]
     Active Substance: ALFACALCIDOL
     Dosage: 0.25 UG, EVERYDAY
     Route: 048
     Dates: start: 20200310, end: 20200621
  6. PARSABIV [Suspect]
     Active Substance: ETELCALCETIDE HYDROCHLORIDE
     Indication: HYPERPARATHYROIDISM SECONDARY
     Dosage: 5 MILLIGRAM, 3 TIMES/WK
     Route: 010
     Dates: start: 20190716, end: 20191207
  7. FOSRENOL [Concomitant]
     Active Substance: LANTHANUM CARBONATE
     Dosage: 750 MG, EVERYDAY
     Route: 065
  8. ALFAROL [Concomitant]
     Active Substance: ALFACALCIDOL
     Dosage: 0.5 UG, EVERYDAY
     Route: 048
     Dates: start: 20190810, end: 20200309

REACTIONS (6)
  - Shunt stenosis [Recovered/Resolved]
  - Peripheral arterial occlusive disease [Recovering/Resolving]
  - Shunt stenosis [Recovered/Resolved]
  - Pyelonephritis [Recovered/Resolved]
  - Shunt stenosis [Recovered/Resolved]
  - Shunt stenosis [Recovered/Resolved]

NARRATIVE: CASE EVENT DATE: 20190821
